FAERS Safety Report 20789695 (Version 1)
Quarter: 2022Q2

REPORT INFORMATION
  Report Type: Spontaneous
  Country: US (occurrence: None)
  Receive Date: 20220504
  Receipt Date: 20220504
  Transmission Date: 20220721
  Serious: Yes (Hospitalization)
  Sender: FDA-Public Use
  Company Number: None

PATIENT
  Sex: Male

DRUGS (4)
  1. ALPHANATE [Suspect]
     Active Substance: HUMAN COAGULATION FACTOR VIII/VON WILLEBRAND FACTOR COMPLEX
     Indication: Factor VIII deficiency
     Dosage: 1000 UNIT? INFUSE 1000 UNITS RCOF INTRAVENOUSLY AS NEEDED FOR BLEEDING OR EMERGENCY
     Route: 042
  2. ALPHANATE [Suspect]
     Active Substance: HUMAN COAGULATION FACTOR VIII/VON WILLEBRAND FACTOR COMPLEX
     Dosage: OTHER QUANTITY : 1000 UNITS;?FREQUENCY : AS NEEDED;?
     Route: 042
  3. AMICAR SOL [Concomitant]
  4. MULTIVITAMIN CHW CHILDREN [Concomitant]

REACTIONS (2)
  - Tongue biting [None]
  - Factor VIII deficiency [None]
